FAERS Safety Report 21263437 (Version 1)
Quarter: 2022Q3

REPORT INFORMATION
  Report Type: Spontaneous
  Country: RU (occurrence: RU)
  Receive Date: 20220829
  Receipt Date: 20220829
  Transmission Date: 20221027
  Serious: Yes (Hospitalization, Other)
  Sender: FDA-Public Use
  Company Number: RU-009507513-2208RUS009233

PATIENT
  Sex: Female

DRUGS (1)
  1. LAGEVRIO [Suspect]
     Active Substance: MOLNUPIRAVIR
     Indication: COVID-19 treatment
     Dosage: 1 CAPSULE 2 TIMES A DAY FOR 20 DAYS
     Route: 048
     Dates: start: 2022, end: 2022

REACTIONS (9)
  - Haematochezia [Unknown]
  - Adverse event [Unknown]
  - Decreased appetite [Unknown]
  - Nervousness [Unknown]
  - Mucous stools [Unknown]
  - Diarrhoea [Unknown]
  - Nausea [Unknown]
  - Product prescribing issue [Unknown]
  - Incorrect dose administered [Unknown]

NARRATIVE: CASE EVENT DATE: 20220101
